FAERS Safety Report 5899595-0 (Version None)
Quarter: 2008Q3

REPORT INFORMATION
  Report Type: 
  Country: None (occurrence: None)
  Receive Date: 20080926
  Receipt Date: 20080922
  Transmission Date: 20090109
  Serious: Yes (Hospitalization, Other)
  Sender: FDA-Public Use
  Company Number: PHHY2008BR14564

PATIENT
  Sex: Male

DRUGS (2)
  1. PREXIGE [Suspect]
     Dosage: 100 MG UNK
     Route: 048
  2. VOLTAREN [Suspect]
     Dosage: 2 TABLETS FOR 2 DAYS
     Route: 048

REACTIONS (1)
  - HAEMORRHAGE [None]
